FAERS Safety Report 9082964 (Version 1)
Quarter: 2013Q1

REPORT INFORMATION
  Report Type: Spontaneous
  Country: PR (occurrence: PR)
  Receive Date: 20130130
  Receipt Date: 20130130
  Transmission Date: 20140127
  Serious: No
  Sender: FDA-Public Use
  Company Number: PR-ABBOTT-12P-131-0959858-00

PATIENT
  Sex: Female
  Weight: 62.65 kg

DRUGS (4)
  1. HUMIRA 40 MG/ 0.8 ML PRE-FILLED SYRINGE [Suspect]
     Indication: PSORIATIC ARTHROPATHY
     Route: 058
     Dates: start: 201202
  2. METHOTREXATE [Concomitant]
     Indication: PSORIATIC ARTHROPATHY
     Dosage: 12.5MG: ONCE A WEEK
     Route: 048
  3. PREDNISONE [Concomitant]
     Indication: PSORIATIC ARTHROPATHY
     Dosage: 1 TABLET DAILY FOR 7 DAYS
     Route: 048
     Dates: start: 201202, end: 201202
  4. PREDNISONE [Concomitant]
     Indication: PSORIATIC ARTHROPATHY
     Dosage: 1 TABLET DAILY FOR 7 DAYS
     Route: 048
     Dates: start: 201204, end: 201204

REACTIONS (12)
  - Central nervous system lesion [Not Recovered/Not Resolved]
  - Psoriasis [Unknown]
  - Arthralgia [Unknown]
  - Drug ineffective [Not Recovered/Not Resolved]
  - Vertigo [Not Recovered/Not Resolved]
  - Vestibular neuronitis [Not Recovered/Not Resolved]
  - Multiple sclerosis [Not Recovered/Not Resolved]
  - Pruritus generalised [Recovered/Resolved]
  - Asthenia [Not Recovered/Not Resolved]
  - Headache [Not Recovered/Not Resolved]
  - Neuralgia [Unknown]
  - Tremor [Unknown]
